FAERS Safety Report 9220795 (Version 5)
Quarter: 2013Q4

REPORT INFORMATION
  Report Type: Spontaneous
  Country: US (occurrence: US)
  Receive Date: 20130409
  Receipt Date: 20131122
  Transmission Date: 20140711
  Serious: Yes (Disabling, Other)
  Sender: FDA-Public Use
  Company Number: PHEH2013US007480

PATIENT
  Age: 39 Year
  Sex: Female
  Weight: 69 kg

DRUGS (6)
  1. GILENYA [Suspect]
     Indication: MULTIPLE SCLEROSIS
     Dosage: 0.5 MG, QD
     Route: 048
     Dates: start: 20130312, end: 201305
  2. TACLONEX [Concomitant]
     Indication: PUSTULAR PSORIASIS
     Dosage: 0.005-0.006 G TO FOOT, QD
  3. MULTI-VIT [Concomitant]
     Dosage: 2 DF, QD
     Route: 048
     Dates: start: 201206
  4. VITAMIN B [Concomitant]
  5. IBUPROFEN [Concomitant]
     Indication: NECK PAIN
     Dosage: 400 MG, PRN
     Route: 048
     Dates: start: 201206
  6. VALTREX [Concomitant]
     Dosage: 1 G, UNK

REACTIONS (8)
  - Erythema multiforme [Recovering/Resolving]
  - Papule [Unknown]
  - Mucosal erosion [Unknown]
  - Rash [Unknown]
  - Blister [Unknown]
  - Drug hypersensitivity [Unknown]
  - Eating disorder [Unknown]
  - Dysphagia [Unknown]
